FAERS Safety Report 5267910-7 (Version None)
Quarter: 2007Q1

REPORT INFORMATION
  Report Type: 
  Country: None (occurrence: None)
  Receive Date: 20061213
  Receipt Date: 20030926
  Transmission Date: 20070707
  Serious: Yes (Hospitalization)
  Sender: FDA-Public Use
  Company Number: 2003UW11251

PATIENT
  Age: 58 Year
  Sex: Female
  Weight: 63.9572 kg

DRUGS (1)
  1. IRESSA [Suspect]
     Indication: LUNG NEOPLASM MALIGNANT
     Dosage: 240 MG DAILY PO
     Route: 048
     Dates: start: 20030522, end: 20030914

REACTIONS (3)
  - DYSPNOEA [None]
  - RASH [None]
  - THROAT TIGHTNESS [None]
